FAERS Safety Report 9107184 (Version 1)
Quarter: 2013Q1

REPORT INFORMATION
  Report Type: Spontaneous
  Country: PH (occurrence: PH)
  Receive Date: 20130221
  Receipt Date: 20130221
  Transmission Date: 20140127
  Serious: Yes (Death, Hospitalization)
  Sender: FDA-Public Use
  Company Number: PH-BAXTER-2013BAX006127

PATIENT
  Age: 64 None
  Sex: Female
  Weight: 70 kg

DRUGS (1)
  1. DIANEAL PD2 WITH 1.5% DEXTROSE [Suspect]
     Indication: PERITONEAL DIALYSIS
     Route: 033
     Dates: start: 20130124, end: 20130213

REACTIONS (4)
  - Respiratory arrest [Fatal]
  - Refusal of treatment by patient [Fatal]
  - Cerebrovascular accident [Unknown]
  - Pneumonia aspiration [Unknown]
